FAERS Safety Report 8612423-5 (Version None)
Quarter: 2012Q3

REPORT INFORMATION
  Report Type: 
  Country: None (occurrence: None)
  Receive Date: 20120809
  Receipt Date: 20120727
  Transmission Date: 20120928
  Serious: Yes (Life-Threatening)
  Sender: FDA-Public Use
  Company Number: 1364992

PATIENT
  Age: 65 Year
  Sex: Male

DRUGS (4)
  1. METRONIDAZOLE [Suspect]
     Indication: ANTIBIOTIC THERAPY
     Route: 042
  2. VANCOMYCIN HCL [Suspect]
     Indication: ANTIBIOTIC THERAPY
     Route: 042
  3. FLUCONAZOLE [Suspect]
     Indication: ANTIBIOTIC THERAPY
     Route: 042
  4. LEVOFLOXACIN [Suspect]
     Indication: ANTIBIOTIC THERAPY
     Route: 042

REACTIONS (13)
  - OEDEMA MUCOSAL [None]
  - MULTI-ORGAN FAILURE [None]
  - TACHYCARDIA [None]
  - GENERAL PHYSICAL HEALTH DETERIORATION [None]
  - LYMPHOCYTOSIS [None]
  - DRUG RASH WITH EOSINOPHILIA AND SYSTEMIC SYMPTOMS [None]
  - MENTAL STATUS CHANGES [None]
  - ARRHYTHMIA SUPRAVENTRICULAR [None]
  - BLOOD CREATININE INCREASED [None]
  - STRIDOR [None]
  - METABOLIC ACIDOSIS [None]
  - TACHYPNOEA [None]
  - TRACHEAL OEDEMA [None]
